FAERS Safety Report 12476117 (Version 2)
Quarter: 2016Q3

REPORT INFORMATION
  Report Type: Report from Study
  Country: US (occurrence: US)
  Receive Date: 20160617
  Receipt Date: 20160720
  Transmission Date: 20161109
  Serious: Yes (Death, Other)
  Sender: FDA-Public Use
  Company Number: US-ROCHE-1770591

PATIENT

DRUGS (6)
  1. DOCETAXEL. [Suspect]
     Active Substance: DOCETAXEL
     Indication: HER-2 POSITIVE BREAST CANCER
     Route: 065
  2. PACLITAXEL. [Suspect]
     Active Substance: PACLITAXEL
     Indication: HER-2 POSITIVE BREAST CANCER
     Route: 065
  3. TRASTUZUMAB [Suspect]
     Active Substance: TRASTUZUMAB
     Dosage: OVER 30 MINUTES: MAINTAINANCE DOSE
     Route: 042
  4. MYL-1401O (TRASTUZUMAB BIOSIMILAR) [Suspect]
     Active Substance: INVESTIGATIONAL PRODUCT
     Indication: HER-2 POSITIVE BREAST CANCER
     Route: 042
  5. TRASTUZUMAB [Suspect]
     Active Substance: TRASTUZUMAB
     Indication: HER-2 POSITIVE BREAST CANCER
     Dosage: LOADING DOSE
     Route: 042
  6. MYL-1401O (TRASTUZUMAB BIOSIMILAR) [Suspect]
     Active Substance: INVESTIGATIONAL PRODUCT
     Route: 042

REACTIONS (2)
  - Neutropenia [Unknown]
  - Death [Fatal]
